FAERS Safety Report 9133520 (Version 3)
Quarter: 2013Q3

REPORT INFORMATION
  Report Type: Spontaneous
  Country: SE (occurrence: SE)
  Receive Date: 20130301
  Receipt Date: 20130822
  Transmission Date: 20140515
  Serious: Yes (Hospitalization, Other)
  Sender: FDA-Public Use
  Company Number: SE-009507513-1302SWE012733

PATIENT
  Age: 62 Year
  Sex: Female

DRUGS (9)
  1. FOSAMAX [Suspect]
     Indication: OSTEOPOROSIS
     Dosage: UNK, WEEKLY
     Route: 048
     Dates: end: 20130104
  2. CALCICHEW [Concomitant]
  3. APROVEL [Concomitant]
  4. BETNOVATE [Concomitant]
  5. PREDNISOLON [Concomitant]
  6. FENURIL [Concomitant]
  7. OCULAC [Concomitant]
  8. XERODENT [Concomitant]
     Dosage: 28.6 MG/0.25 MG
  9. BETOLVIDON [Concomitant]

REACTIONS (1)
  - Pathological fracture [Not Recovered/Not Resolved]
